FAERS Safety Report 19984180 (Version 1)
Quarter: 2021Q4

REPORT INFORMATION
  Report Type: Spontaneous
  Country: US (occurrence: US)
  Receive Date: 20211022
  Receipt Date: 20211022
  Transmission Date: 20220303
  Serious: Yes (Hospitalization)
  Sender: FDA-Public Use
  Company Number: US-JNJFOC-20211020495

PATIENT
  Age: 31 Year
  Sex: Female
  Weight: 82 kg

DRUGS (2)
  1. ACETAMINOPHEN [Suspect]
     Active Substance: ACETAMINOPHEN
     Indication: Suicide attempt
     Dosage: TOTAL DOSE: 50000 MG ON 24/FEB/2002 AT APPROXIMATELY 20:00
     Route: 048
     Dates: start: 20020224, end: 20020224
  2. COCAINE [Suspect]
     Active Substance: COCAINE
     Indication: Substance use
     Dosage: APPROXIMATELY 1-2 GM DURING WEEKENDS FOR 1 YEAR
     Route: 065

REACTIONS (6)
  - Suicide attempt [Not Recovered/Not Resolved]
  - Urinary tract infection [Not Recovered/Not Resolved]
  - Bronchitis [Not Recovered/Not Resolved]
  - Acute hepatic failure [Not Recovered/Not Resolved]
  - Acute kidney injury [Not Recovered/Not Resolved]
  - Intentional overdose [Not Recovered/Not Resolved]
